FAERS Safety Report 20672065 (Version 1)
Quarter: 2022Q2

REPORT INFORMATION
  Report Type: Spontaneous
  Country: IE (occurrence: IE)
  Receive Date: 20220405
  Receipt Date: 20220405
  Transmission Date: 20220721
  Serious: Yes (Hospitalization)
  Sender: FDA-Public Use
  Company Number: IE-TEVA-2022-IE-2023538

PATIENT

DRUGS (1)
  1. DOXORUBICIN [Suspect]
     Active Substance: DOXORUBICIN
     Indication: Anaplastic thyroid cancer
     Dosage: 5 CYCLES, ONCE WEEKLY.
     Route: 042

REACTIONS (4)
  - Dysphagia [Unknown]
  - Radiation skin injury [Unknown]
  - Fatigue [Unknown]
  - Anaemia [Unknown]
